FAERS Safety Report 7984716-6 (Version None)
Quarter: 2011Q4

REPORT INFORMATION
  Report Type: 
  Country: None (occurrence: None)
  Receive Date: 20111216
  Receipt Date: 20111212
  Transmission Date: 20120403
  Serious: No
  Sender: FDA-Public Use
  Company Number: US-JNJFOC-20111205522

PATIENT
  Sex: Male
  Weight: 81.19 kg

DRUGS (5)
  1. DURAGESIC-100 [Suspect]
     Route: 062
     Dates: start: 20111101
  2. DURAGESIC-100 [Suspect]
     Route: 062
     Dates: start: 20111001, end: 20111101
  3. DURAGESIC-100 [Suspect]
     Route: 062
     Dates: start: 20111001, end: 20111101
  4. DURAGESIC-100 [Suspect]
     Indication: PAIN
     Route: 062
     Dates: start: 20111101
  5. DURAGESIC-100 [Suspect]
     Route: 062
     Dates: start: 20111101

REACTIONS (2)
  - WRONG TECHNIQUE IN DRUG USAGE PROCESS [None]
  - DRUG INEFFECTIVE [None]
